FAERS Safety Report 22132070 (Version 1)
Quarter: 2023Q1

REPORT INFORMATION
  Report Type: Spontaneous
  Country: US (occurrence: US)
  Receive Date: 20230323
  Receipt Date: 20230323
  Transmission Date: 20230417
  Serious: No
  Sender: FDA-Public Use
  Company Number: US-Calliditas-2023CAL00287

PATIENT
  Age: 46 Year
  Sex: Female
  Weight: 73 kg

DRUGS (1)
  1. TARPEYO [Suspect]
     Active Substance: BUDESONIDE
     Indication: IgA nephropathy
     Dosage: 16 MG (4 CAPSULES) ONCE DAILY
     Route: 048
     Dates: start: 20220307

REACTIONS (4)
  - Fatigue [Unknown]
  - Headache [Recovered/Resolved]
  - Pulmonary congestion [Unknown]
  - Sinus congestion [Unknown]
